FAERS Safety Report 7546729-8 (Version None)
Quarter: 2011Q2

REPORT INFORMATION
  Report Type: 
  Country: None (occurrence: None)
  Receive Date: 20110614
  Receipt Date: 20110606
  Transmission Date: 20111010
  Serious: Yes (Life-Threatening, Hospitalization)
  Sender: FDA-Public Use
  Company Number: A0919029A

PATIENT
  Age: 43 Year
  Sex: Male
  Weight: 66 kg

DRUGS (2)
  1. OXYGEN [Concomitant]
  2. FLOLAN [Suspect]
     Indication: PULMONARY ARTERIAL HYPERTENSION
     Route: 042
     Dates: start: 20030517

REACTIONS (2)
  - PNEUMONIA [None]
  - COUGH [None]
